FAERS Safety Report 5251427-X (Version None)
Quarter: 2007Q1

REPORT INFORMATION
  Report Type: 
  Country: None (occurrence: None)
  Receive Date: 20070228
  Receipt Date: 20060614
  Transmission Date: 20070707
  Serious: No
  Sender: FDA-Public Use
  Company Number: US-GLAXOSMITHKLINE-A0604702A

PATIENT
  Age: 41 Year
  Sex: Female

DRUGS (5)
  1. LAMICTAL [Suspect]
     Indication: BIPOLAR DISORDER
     Dosage: 50MG PER DAY
     Route: 048
     Dates: start: 20060329, end: 20060419
  2. WELLBUTRIN XL [Concomitant]
  3. ATIVAN [Concomitant]
  4. ADDERALL 10 [Concomitant]
  5. AMBIEN [Concomitant]

REACTIONS (1)
  - RASH [None]
